FAERS Safety Report 9200400 (Version 1)
Quarter: 2013Q1

REPORT INFORMATION
  Report Type: Report from Study
  Country: US (occurrence: US)
  Receive Date: 20130329
  Receipt Date: 20130329
  Transmission Date: 20140127
  Serious: Yes (Hospitalization, Other)
  Sender: FDA-Public Use
  Company Number: US-ABBOTT-13P-163-1067618-00

PATIENT
  Sex: Female
  Weight: 63.56 kg

DRUGS (11)
  1. HUMIRA [Suspect]
     Indication: RHEUMATOID ARTHRITIS
     Dates: end: 2008
  2. HUMIRA [Suspect]
     Dates: start: 2008, end: 20130225
  3. METOPROLOL [Concomitant]
     Indication: HYPERTENSION
  4. DILTIAZAM [Concomitant]
     Indication: HYPERTENSION
  5. FUROSEMIDE [Concomitant]
     Indication: FLUID RETENTION
  6. ESTRADIOL [Concomitant]
     Indication: HORMONE REPLACEMENT THERAPY
  7. PROGESTERONE [Concomitant]
     Indication: HORMONE REPLACEMENT THERAPY
  8. L-THYROXINE [Concomitant]
     Indication: HYPOTHYROIDISM
  9. FLEXARIL [Concomitant]
     Indication: RHEUMATOID ARTHRITIS
  10. MOBIC [Concomitant]
     Indication: RHEUMATOID ARTHRITIS
  11. DOXYCYCLINE [Concomitant]
     Indication: RASH MACULAR

REACTIONS (4)
  - Joint effusion [Recovered/Resolved]
  - Arthritis [Recovered/Resolved]
  - Knee arthroplasty [Unknown]
  - Musculoskeletal stiffness [Not Recovered/Not Resolved]
